FAERS Safety Report 14630681 (Version 1)
Quarter: 2018Q1

REPORT INFORMATION
  Report Type: Spontaneous
  Country: US (occurrence: US)
  Receive Date: 20180313
  Receipt Date: 20180313
  Transmission Date: 20180509
  Serious: Yes (Hospitalization, Other)
  Sender: FDA-Public Use
  Company Number: US-ASTRAZENECA-2018SE29583

PATIENT
  Age: 771 Month
  Sex: Male
  Weight: 113.4 kg

DRUGS (5)
  1. SYNTHROID [Concomitant]
     Active Substance: LEVOTHYROXINE SODIUM
     Indication: THYROID DISORDER
  2. BABY ASPIRIN [Concomitant]
     Active Substance: ASPIRIN
  3. LASIX [Concomitant]
     Active Substance: FUROSEMIDE
  4. SYMBICORT [Suspect]
     Active Substance: BUDESONIDE\FORMOTEROL FUMARATE DIHYDRATE
     Indication: ASTHMA
     Dosage: 160/4.5 MCG TWO PUFFS, TWICE A DAY
     Route: 055
     Dates: start: 2017
  5. SYMBICORT [Suspect]
     Active Substance: BUDESONIDE\FORMOTEROL FUMARATE DIHYDRATE
     Indication: CHRONIC OBSTRUCTIVE PULMONARY DISEASE
     Dosage: 160/4.5 MCG TWO PUFFS, TWICE A DAY
     Route: 055
     Dates: start: 2017

REACTIONS (14)
  - Diabetes mellitus [Not Recovered/Not Resolved]
  - Cerebrovascular accident [Recovered/Resolved]
  - Thrombosis [Unknown]
  - Headache [Recovered/Resolved]
  - Device use issue [Unknown]
  - Metamorphopsia [Recovered/Resolved]
  - Visual impairment [Recovered/Resolved]
  - Diplopia [Recovered/Resolved]
  - Pneumonia [Recovered/Resolved]
  - Pharyngitis streptococcal [Recovered/Resolved]
  - Thrombosis in device [Unknown]
  - Malaise [Recovered/Resolved]
  - Pallor [Recovered/Resolved]
  - Off label use [Unknown]

NARRATIVE: CASE EVENT DATE: 201712
